FAERS Safety Report 12347358 (Version 2)
Quarter: 2016Q3

REPORT INFORMATION
  Report Type: Spontaneous
  Country: BR (occurrence: BR)
  Receive Date: 20160509
  Receipt Date: 20160711
  Transmission Date: 20161109
  Serious: Yes (Hospitalization, Disabling, Other)
  Sender: FDA-Public Use
  Company Number: BR-PFIZER INC-2015418199

PATIENT
  Age: 67 Year
  Sex: Female
  Weight: 83 kg

DRUGS (3)
  1. LOSARTAN. [Concomitant]
     Active Substance: LOSARTAN
     Indication: BLOOD PRESSURE ABNORMAL
     Dosage: UNK
     Dates: start: 2012
  2. ABLOK PLUS [Concomitant]
     Active Substance: ATENOLOL\CHLORTHALIDONE
     Indication: BLOOD PRESSURE ABNORMAL
     Dosage: UNK
     Dates: start: 2012
  3. SUTENT [Suspect]
     Active Substance: SUNITINIB MALATE
     Indication: METASTATIC RENAL CELL CARCINOMA
     Dosage: ONE TABLET PER DAY, CYCLIC (TAKES 28 DAYS AND PAUSES FOR 7 DAYS)
     Route: 048
     Dates: start: 20151029, end: 201605

REACTIONS (25)
  - Gastric ulcer [Recovered/Resolved]
  - Weight decreased [Recovered/Resolved]
  - Asthenia [Recovering/Resolving]
  - Skin hypertrophy [Recovered/Resolved]
  - Toothache [Recovered/Resolved]
  - Skin fissures [Recovered/Resolved]
  - Gait disturbance [Recovered/Resolved]
  - Eye swelling [Recovered/Resolved]
  - Yellow skin [Recovered/Resolved]
  - Dysgeusia [Recovered/Resolved]
  - Blister [Recovered/Resolved]
  - Skin exfoliation [Recovered/Resolved]
  - Eye pruritus [Recovered/Resolved]
  - Hypertension [Recovered/Resolved]
  - Thyroid disorder [Recovered/Resolved]
  - Gastritis [Recovered/Resolved]
  - Urinary tract infection [Recovered/Resolved]
  - Eye irritation [Recovered/Resolved]
  - Tooth infection [Unknown]
  - Skin hypertrophy [Recovered/Resolved]
  - Madarosis [Recovered/Resolved]
  - Haemorrhoids [Recovered/Resolved]
  - Visual impairment [Recovered/Resolved]
  - Appetite disorder [Not Recovered/Not Resolved]
  - Oesophageal infection [Recovered/Resolved]

NARRATIVE: CASE EVENT DATE: 2015
